FAERS Safety Report 12642102 (Version 1)
Quarter: 2016Q3

REPORT INFORMATION
  Report Type: Report from Study
  Country: CN (occurrence: CN)
  Receive Date: 20160810
  Receipt Date: 20160810
  Transmission Date: 20161109
  Serious: Yes (Other)
  Sender: FDA-Public Use
  Company Number: CN-MYLANLABS-2016M1032369

PATIENT

DRUGS (2)
  1. TS-1 [Concomitant]
     Active Substance: GIMERACIL\OTERACIL\TEGAFUR
     Indication: MALIGNANT ASCITES
     Dosage: AT A FIXED DOSE OF 80 MG/M2/DAY FOR 14 CONSECUTIVE DAYS, FOLLOWED BY 7 DAYS OF REST
     Route: 048
  2. CISPLATIN. [Suspect]
     Active Substance: CISPLATIN
     Indication: MALIGNANT ASCITES
     Dosage: ON DAY 1 AT A FIXED DOSE OF 75 MG/M 2; RECEIVED 6 CYCLES OF THE CHEMOTHERAPY
     Route: 033

REACTIONS (1)
  - Intestinal obstruction [Unknown]
